FAERS Safety Report 9707770 (Version 1)
Quarter: 2013Q4

REPORT INFORMATION
  Report Type: Spontaneous
  Country: US (occurrence: US)
  Receive Date: 20131125
  Receipt Date: 20131125
  Transmission Date: 20140711
  Serious: Yes (Hospitalization, Other)
  Sender: FDA-Public Use
  Company Number: US-ASTELLAS-2013US012004

PATIENT
  Age: 82 Year
  Sex: Male

DRUGS (5)
  1. XTANDI [Suspect]
     Indication: PROSTATE CANCER
     Dosage: 160 MG, UID/QD
     Route: 048
     Dates: start: 201210
  2. XTANDI [Suspect]
     Dosage: UNK
     Route: 065
     Dates: end: 201301
  3. MDV3100 [Concomitant]
     Indication: PROSTATE CANCER
     Dosage: 160 MG, UID/QD
     Route: 048
     Dates: end: 20121018
  4. XGEVA [Concomitant]
     Indication: PROSTATE CANCER
     Dosage: UNK
     Route: 065
     Dates: end: 201211
  5. ZYTIGA [Concomitant]
     Indication: PROSTATE CANCER
     Dosage: 1000 MG, UID/QD
     Route: 065
     Dates: start: 201106, end: 201211

REACTIONS (8)
  - Transaminases increased [Unknown]
  - Nephropathy [Unknown]
  - Pulmonary oedema [Unknown]
  - Anaemia [Unknown]
  - Cardiac failure congestive [Not Recovered/Not Resolved]
  - Pleural effusion [Recovering/Resolving]
  - Renal failure acute [Unknown]
  - Hip fracture [Unknown]
